FAERS Safety Report 7808520-4 (Version None)
Quarter: 2011Q4

REPORT INFORMATION
  Report Type: 
  Country: None (occurrence: None)
  Receive Date: 20111012
  Receipt Date: 20111004
  Transmission Date: 20120403
  Serious: Yes (Hospitalization)
  Sender: FDA-Public Use
  Company Number: JP-JNJFOC-20110711036

PATIENT
  Age: 7 Decade
  Sex: Female

DRUGS (6)
  1. TRAMADOL HYDROCHLORIDE/ACETAMINOPHEN [Suspect]
     Indication: PAIN
     Dosage: 3 TABLETS PER DAY, 3 TIMES DAILY
     Route: 048
  2. TRAMADOL HYDROCHLORIDE/ACETAMINOPHEN [Suspect]
     Dosage: 2 TABLETS PER DAY-2 TIMES DAILY
     Route: 048
  3. CELECOXIB [Concomitant]
     Route: 048
  4. DOMPERIDONE [Concomitant]
     Route: 065
  5. TRAMADOL HYDROCHLORIDE/ACETAMINOPHEN [Suspect]
     Dosage: 1 TABLET PER DAY, ONCE DAILY
     Route: 048
  6. UNKNOWN MEDICATION [Concomitant]
     Route: 065

REACTIONS (3)
  - GASTROINTESTINAL DISORDER [None]
  - RETCHING [None]
  - NAUSEA [None]
